FAERS Safety Report 4951339-2 (Version None)
Quarter: 2006Q1

REPORT INFORMATION
  Report Type: 
  Country: None (occurrence: None)
  Receive Date: 20060317
  Receipt Date: 20060227
  Transmission Date: 20060701
  Serious: Yes (Other)
  Sender: FDA-Public Use
  Company Number: US200602005503

PATIENT
  Sex: Female

DRUGS (7)
  1. FORTEO [Suspect]
     Dates: start: 20050101
  2. FORTEO [Concomitant]
  3. PREMARIN [Concomitant]
  4. PROZAC [Concomitant]
  5. CALCIUM (CALCIUM) [Concomitant]
  6. MAGNESIUM (MAGNESIUM) [Concomitant]
  7. VITAMIN B12 [Concomitant]

REACTIONS (1)
  - HEPATIC FUNCTION ABNORMAL [None]
